FAERS Safety Report 9476810 (Version 2)
Quarter: 2013Q4

REPORT INFORMATION
  Report Type: Spontaneous
  Country: US (occurrence: US)
  Receive Date: 20130826
  Receipt Date: 20131105
  Transmission Date: 20140711
  Serious: Yes (Hospitalization, Disabling, Other)
  Sender: FDA-Public Use
  Company Number: US-GLAXOSMITHKLINE-A1038581A

PATIENT
  Age: 53 Year
  Sex: Female
  Weight: 58.2 kg

DRUGS (11)
  1. BENLYSTA [Suspect]
     Indication: PRODUCT USED FOR UNKNOWN INDICATION
     Route: 042
     Dates: end: 201212
  2. CRANBERRY [Concomitant]
  3. PLAQUENIL [Concomitant]
  4. CIPROFLOXACIN [Concomitant]
  5. PREDNISONE [Concomitant]
  6. COLCRYS [Concomitant]
  7. TRACLEER [Concomitant]
     Dosage: 62.5MG TWICE PER DAY
  8. VITAMIN D [Concomitant]
  9. VICODIN [Concomitant]
  10. NEURONTIN [Concomitant]
  11. NIFEDIPINE ER [Concomitant]

REACTIONS (1)
  - Non-small cell lung cancer [Unknown]
